FAERS Safety Report 12610808 (Version 8)
Quarter: 2017Q2

REPORT INFORMATION
  Report Type: Spontaneous
  Country: US (occurrence: US)
  Receive Date: 20160801
  Receipt Date: 20170411
  Transmission Date: 20170830
  Serious: No
  Sender: FDA-Public Use
  Company Number: US-PFIZER INC-2016254354

PATIENT
  Age: 57 Year
  Sex: Female
  Weight: 45 kg

DRUGS (6)
  1. IBRANCE [Suspect]
     Active Substance: PALBOCICLIB
     Indication: BREAST CANCER METASTATIC
     Dosage: 125 MG, CYCLIC (21 DAYS ON/7 DAYS OFF)
     Route: 048
     Dates: start: 20160425, end: 20160428
  2. IBRANCE [Suspect]
     Active Substance: PALBOCICLIB
     Dosage: 125 MG, CYCLIC (21 DAYS ON/7 DAYS OFF)
     Route: 048
     Dates: start: 201606
  3. IBRANCE [Suspect]
     Active Substance: PALBOCICLIB
     Dosage: 100 MG, CYCLIC (21 DAYS ON/7 DAYS OFF)
     Route: 048
     Dates: start: 20160813
  4. IBRANCE [Suspect]
     Active Substance: PALBOCICLIB
     Dosage: 100 MG, CYCLIC (21 DAYS ON/7 DAYS OFF)
     Route: 048
     Dates: start: 20160813
  5. IBRANCE [Suspect]
     Active Substance: PALBOCICLIB
     Dosage: 100 MG, CYCLIC (DAYS1-21 Q28 DAYS)
     Route: 048
     Dates: start: 20160425
  6. IBRANCE [Suspect]
     Active Substance: PALBOCICLIB
     Dosage: 100 MG, CYCLIC (DAYS1-21 Q28 DAYS)
     Route: 048
     Dates: start: 20160425

REACTIONS (13)
  - Memory impairment [Unknown]
  - Vomiting [Unknown]
  - Cheilitis [Unknown]
  - Oral discomfort [Unknown]
  - Rash pruritic [Not Recovered/Not Resolved]
  - Nasal disorder [Unknown]
  - Diarrhoea [Unknown]
  - Abdominal discomfort [Unknown]
  - Skin irritation [Unknown]
  - Nausea [Unknown]
  - Drug dose omission [Unknown]
  - Blood test abnormal [Unknown]
  - Stomatitis [Not Recovered/Not Resolved]

NARRATIVE: CASE EVENT DATE: 201606
